FAERS Safety Report 16532142 (Version 1)
Quarter: 2019Q3

REPORT INFORMATION
  Report Type: Spontaneous
  Country: KR (occurrence: KR)
  Receive Date: 20190705
  Receipt Date: 20190705
  Transmission Date: 20191004
  Serious: Yes (Death, Other)
  Sender: FDA-Public Use
  Company Number: KR-BAYER-2019-124324

PATIENT

DRUGS (1)
  1. NEXAVAR [Suspect]
     Active Substance: SORAFENIB
     Dosage: UNK

REACTIONS (2)
  - Death [Fatal]
  - Disease progression [None]
